FAERS Safety Report 10620273 (Version 2)
Quarter: 2014Q4

REPORT INFORMATION
  Report Type: Spontaneous
  Country: US (occurrence: US)
  Receive Date: 20141202
  Receipt Date: 20141202
  Transmission Date: 20150529
  Serious: No
  Sender: FDA-Public Use
  Company Number: US-BAXTER-2014BAX070926

PATIENT
  Sex: Female
  Weight: 70.82 kg

DRUGS (1)
  1. DIANEAL LOW CALCIUM PERITONEAL DIALYSIS SOLUTION WITH DEXTROSE [Suspect]
     Active Substance: CALCIUM CHLORIDE\DEXTROSE\MAGNESIUM CHLORIDE\SODIUM CHLORIDE\SODIUM LACTATE
     Indication: PERITONEAL DIALYSIS
     Route: 033

REACTIONS (5)
  - Chest discomfort [Recovered/Resolved]
  - Myalgia [Recovered/Resolved]
  - Hypoacusis [Unknown]
  - Muscle spasms [Recovered/Resolved]
  - Abdominal pain [Recovered/Resolved]
